FAERS Safety Report 13423929 (Version 1)
Quarter: 2017Q2

REPORT INFORMATION
  Report Type: Spontaneous
  Country: FR (occurrence: FR)
  Receive Date: 20170410
  Receipt Date: 20170410
  Transmission Date: 20170830
  Serious: Yes (Other)
  Sender: FDA-Public Use
  Company Number: FR-PFIZER INC-2017155680

PATIENT
  Age: 74 Year
  Sex: Male

DRUGS (3)
  1. FLUOROURACILE PFIZER [Suspect]
     Active Substance: FLUOROURACIL
     Indication: ADENOCARCINOMA GASTRIC
     Dosage: UNK
     Dates: start: 20160111, end: 201609
  2. FOLIC ACID. [Suspect]
     Active Substance: FOLIC ACID
     Indication: ADENOCARCINOMA GASTRIC
     Dosage: UNK
     Dates: start: 20160111, end: 201609
  3. OXALIPLATIN. [Suspect]
     Active Substance: OXALIPLATIN
     Indication: ADENOCARCINOMA GASTRIC
     Dosage: UNK
     Dates: start: 20160111, end: 201609

REACTIONS (6)
  - Pneumonia aspiration [Unknown]
  - Pleural effusion [Unknown]
  - Septic shock [Unknown]
  - Cardiac failure [Unknown]
  - Haematuria [Unknown]
  - Cystitis [Unknown]

NARRATIVE: CASE EVENT DATE: 201601
